FAERS Safety Report 17389712 (Version 1)
Quarter: 2020Q1

REPORT INFORMATION
  Report Type: Report from Study
  Country: GB (occurrence: GB)
  Receive Date: 20200207
  Receipt Date: 20200207
  Transmission Date: 20200409
  Serious: Yes (Hospitalization)
  Sender: FDA-Public Use
  Company Number: GB-JNJFOC-20190935422

PATIENT
  Sex: Male
  Weight: 112 kg

DRUGS (18)
  1. OXYCODONE [Concomitant]
     Active Substance: OXYCODONE
     Dates: start: 20190611
  2. TAZOCIN [Concomitant]
     Active Substance: PIPERACILLIN SODIUM\TAZOBACTAM SODIUM
     Dates: start: 20190805, end: 20190809
  3. FUCIBET [Concomitant]
     Dates: start: 20101116
  4. IBULEVE [Concomitant]
     Dates: start: 20190611
  5. FLUTICASONE PROPIONATE. [Concomitant]
     Active Substance: FLUTICASONE PROPIONATE
     Dates: start: 20111018
  6. GENTAMICIN. [Concomitant]
     Active Substance: GENTAMICIN
     Dates: start: 20190809, end: 20190812
  7. HYDROXYCARBAMIDE [Concomitant]
     Active Substance: HYDROXYUREA
     Dates: start: 20111115
  8. TEICOPLANIN [Concomitant]
     Active Substance: TEICOPLANIN
     Dates: start: 20190807, end: 20190812
  9. DOUBLEBASE [Concomitant]
     Active Substance: ISOPROPYL MYRISTATE\PARAFFIN
     Dates: start: 20101214
  10. STELARA [Suspect]
     Active Substance: USTEKINUMAB
     Indication: PSORIASIS
     Route: 058
     Dates: start: 20130930, end: 20190625
  11. DOVONEX [Concomitant]
     Active Substance: CALCIPOTRIENE
     Dates: start: 20101229
  12. DIPROSALIC [Concomitant]
     Active Substance: BETAMETHASONE DIPROPIONATE
     Dates: start: 20111115
  13. DEXAMETHASONE. [Concomitant]
     Active Substance: DEXAMETHASONE
     Dates: start: 20190420, end: 20190427
  14. FLUTICASONE. [Concomitant]
     Active Substance: FLUTICASONE
     Dates: start: 20100218
  15. SYNALAR [Concomitant]
     Active Substance: FLUOCINOLONE ACETONIDE
     Dates: start: 20101214
  16. DERMOVATE [Concomitant]
     Active Substance: CLOBETASOL
     Dates: start: 20120424
  17. CO-AMOXICLAV                       /02043401/ [Concomitant]
     Active Substance: AMOXICILLIN\CLAVULANIC ACID
     Dates: start: 20180314, end: 20180321
  18. MEROPENEM. [Concomitant]
     Active Substance: MEROPENEM
     Dates: start: 20190809, end: 20190812

REACTIONS (1)
  - Upper respiratory tract infection [Recovered/Resolved]

NARRATIVE: CASE EVENT DATE: 20180414
